FAERS Safety Report 8509097-0 (Version None)
Quarter: 2012Q3

REPORT INFORMATION
  Report Type: 
  Country: None (occurrence: None)
  Receive Date: 20120713
  Receipt Date: 20120709
  Transmission Date: 20120928
  Serious: Yes (Hospitalization)
  Sender: FDA-Public Use
  Company Number: US-GLAXOSMITHKLINE-A0753973A

PATIENT
  Age: 39 Year
  Sex: Male
  Weight: 118.6 kg

DRUGS (4)
  1. GLUCOPHAGE [Concomitant]
  2. GLUCOTROL [Concomitant]
  3. METFORMIN HYDROCHLORIDE [Concomitant]
  4. AVANDIA [Suspect]
     Indication: TYPE 2 DIABETES MELLITUS
     Dosage: 8MG PER DAY
     Route: 048
     Dates: start: 20040524

REACTIONS (2)
  - MYOCARDIAL INFARCTION [None]
  - CARDIAC FAILURE CONGESTIVE [None]
